FAERS Safety Report 10243606 (Version 1)
Quarter: 2014Q2

REPORT INFORMATION
  Report Type: Spontaneous
  Country: US (occurrence: US)
  Receive Date: 20140618
  Receipt Date: 20140618
  Transmission Date: 20141212
  Serious: No
  Sender: FDA-Public Use
  Company Number: US-PFIZER INC-2014164349

PATIENT
  Sex: Female

DRUGS (1)
  1. ZITHROMAX [Suspect]
     Indication: SINUSITIS
     Dosage: 500 MG, 1X/DAY FOR ONE DAY AND THEN 250 MG 1X/DAY FOR 4 DAYS
     Route: 048
     Dates: start: 20140612

REACTIONS (3)
  - Malaise [Unknown]
  - Fatigue [Unknown]
  - Abdominal discomfort [Unknown]
